FAERS Safety Report 7562480-2 (Version None)
Quarter: 2011Q2

REPORT INFORMATION
  Report Type: 
  Country: None (occurrence: None)
  Receive Date: 20110614
  Receipt Date: 20110608
  Transmission Date: 20111010
  Serious: Yes (Hospitalization, Other)
  Sender: FDA-Public Use
  Company Number: 201110221

PATIENT
  Sex: Female

DRUGS (1)
  1. LIORESAL [Suspect]
     Indication: MUSCLE SPASTICITY
     Dosage: 2000 MCG, DAILY, INTRATHECAL
     Route: 037

REACTIONS (4)
  - DEVICE BATTERY ISSUE [None]
  - WITHDRAWAL SYNDROME [None]
  - CLONUS [None]
  - MUSCLE TWITCHING [None]
